FAERS Safety Report 8104726-8 (Version None)
Quarter: 2012Q1

REPORT INFORMATION
  Report Type: 
  Country: None (occurrence: None)
  Receive Date: 20120130
  Receipt Date: 20120123
  Transmission Date: 20120608
  Serious: Yes (Other)
  Sender: FDA-Public Use
  Company Number: GB-PFIZER INC-2012018837

PATIENT
  Age: 40 Year
  Sex: Female

DRUGS (2)
  1. LYRICA [Suspect]
     Indication: BIPOLAR DISORDER
     Dosage: UNK
  2. LITHIUM [Concomitant]

REACTIONS (10)
  - RENAL DISORDER [None]
  - MYALGIA [None]
  - MALAISE [None]
  - BLADDER DISORDER [None]
  - CONSTIPATION [None]
  - RHINORRHOEA [None]
  - INCONTINENCE [None]
  - MEMORY IMPAIRMENT [None]
  - PERIPHERAL COLDNESS [None]
  - HYPERHIDROSIS [None]
